FAERS Safety Report 11560625 (Version 1)
Quarter: 2015Q3

REPORT INFORMATION
  Report Type: Spontaneous
  Country: US (occurrence: US)
  Receive Date: 20150916
  Receipt Date: 20150916
  Transmission Date: 20151125
  Serious: No
  Sender: FDA-Public Use
  Company Number: US-ELI_LILLY_AND_COMPANY-US200809006776

PATIENT
  Age: 65 Year
  Sex: Female

DRUGS (11)
  1. VITAMIN D [Concomitant]
     Active Substance: CHOLECALCIFEROL
     Dosage: 1000 MG, DAILY (1/D)
     Dates: start: 20080909
  2. VITAMIN C [Concomitant]
     Active Substance: ASCORBIC ACID
  3. MULTIVITAMIN [Concomitant]
     Active Substance: VITAMINS
  4. PROTONIX [Concomitant]
     Active Substance: PANTOPRAZOLE SODIUM
  5. CALCIUM [Concomitant]
     Active Substance: CALCIUM
     Dates: end: 20080813
  6. DIOVAN [Concomitant]
     Active Substance: VALSARTAN
  7. VITAMIN D [Concomitant]
     Active Substance: CHOLECALCIFEROL
     Dosage: 50000 MG, WEEKLY (1/W)
     Dates: start: 20080909
  8. FORTEO [Suspect]
     Active Substance: TERIPARATIDE
     Indication: OSTEOPOROSIS
     Dosage: 20 UG, DAILY (1/D)
     Dates: start: 200801
  9. VITAMIN D [Concomitant]
     Active Substance: CHOLECALCIFEROL
     Dates: end: 2008
  10. ARMOUR THYROID [Concomitant]
     Active Substance: THYROID, PORCINE\THYROID, UNSPECIFIED
  11. VITAMIN B12 [Concomitant]
     Active Substance: CYANOCOBALAMIN
     Indication: VITAMIN SUPPLEMENTATION

REACTIONS (12)
  - Blood calcium increased [Not Recovered/Not Resolved]
  - Vitamin D decreased [Recovered/Resolved]
  - Blood uric acid increased [Not Recovered/Not Resolved]
  - Red cell distribution width increased [Recovering/Resolving]
  - Insomnia [Recovering/Resolving]
  - Gait disturbance [Recovering/Resolving]
  - Asthenia [Recovering/Resolving]
  - Myalgia [Recovering/Resolving]
  - Blood urea nitrogen/creatinine ratio increased [Recovering/Resolving]
  - Fatigue [Not Recovered/Not Resolved]
  - Limb discomfort [Recovering/Resolving]
  - Solar lentigo [Not Recovered/Not Resolved]

NARRATIVE: CASE EVENT DATE: 2008
